FAERS Safety Report 5597062-5 (Version None)
Quarter: 2008Q1

REPORT INFORMATION
  Report Type: 
  Country: None (occurrence: None)
  Receive Date: 20080121
  Receipt Date: 20080107
  Transmission Date: 20080703
  Serious: Yes (Death)
  Sender: FDA-Public Use
  Company Number: US-WYE-H02040508

PATIENT
  Age: 34 Year
  Sex: Female

DRUGS (7)
  1. PSEUDOEPHEDRINE HYDROCHLORIDE [Suspect]
     Dosage: UNKNOWN
     Route: 048
     Dates: start: 20060101, end: 20060101
  2. ETHANOL [Suspect]
     Dosage: UNKNOWN
     Route: 048
     Dates: start: 20060101, end: 20060101
  3. VENLAFAXINE HYDROCHLORIDE [Suspect]
     Dosage: UNKNOWN
     Route: 048
     Dates: start: 20060101, end: 20060101
  4. NAPROXEN [Suspect]
     Dosage: UNKNOWN
     Route: 048
     Dates: start: 20060101, end: 20060101
  5. DICLOFENAC [Suspect]
     Dosage: UNKNOWN
     Route: 048
     Dates: start: 20060101, end: 20060101
  6. AMFEBUTAMONE [Suspect]
     Dosage: UNKNOWN
     Route: 048
     Dates: start: 20060101, end: 20060101
  7. CLOMIFENE [Suspect]
     Dosage: UNKNOWN
     Route: 048
     Dates: start: 20060101, end: 20060101

REACTIONS (1)
  - INTENTIONAL OVERDOSE [None]
